FAERS Safety Report 6728962-8 (Version None)
Quarter: 2010Q2

REPORT INFORMATION
  Report Type: 
  Country: None (occurrence: None)
  Receive Date: 20100517
  Receipt Date: 20100315
  Transmission Date: 20101027
  Serious: No
  Sender: FDA-Public Use
  Company Number: US-ABBOTT-10P-163-0632281-00

PATIENT
  Sex: Female
  Weight: 94.886 kg

DRUGS (4)
  1. SIMCOR [Suspect]
     Indication: BLOOD TRIGLYCERIDES INCREASED
     Dosage: 500/20MG DAILY AT BEDTIME
     Dates: start: 20100310
  2. SIMCOR [Suspect]
     Indication: BLOOD CHOLESTEROL INCREASED
  3. PAXIL [Concomitant]
     Indication: DRUG USE FOR UNKNOWN INDICATION
  4. XANAX [Concomitant]
     Indication: DRUG USE FOR UNKNOWN INDICATION
     Dosage: DAILY AT BEDTIME

REACTIONS (1)
  - GENERALISED ERYTHEMA [None]
